FAERS Safety Report 9619340 (Version 2)
Quarter: 2013Q4

REPORT INFORMATION
  Report Type: Spontaneous
  Country: GB (occurrence: GB)
  Receive Date: 20131014
  Receipt Date: 20131022
  Transmission Date: 20140711
  Serious: Yes (Hospitalization, Other)
  Sender: FDA-Public Use
  Company Number: GB-B.I. PHARMACEUTICALS,INC./RIDGEFIELD-2013-BI-31166UK

PATIENT
  Age: 69 Year
  Sex: Female
  Weight: 46.2 kg

DRUGS (10)
  1. MIRAPEXIN [Suspect]
     Indication: PARKINSON^S DISEASE
     Dosage: 1.05 MG
     Dates: start: 2012
  2. MIRAPEXIN [Suspect]
     Dosage: 1.04 MG
     Route: 048
     Dates: start: 20131001, end: 20131003
  3. MIRAPEXIN [Suspect]
     Dosage: 1.08 MG
     Route: 048
  4. CO-CARELDOPA 25/100 [Concomitant]
     Indication: PARKINSON^S DISEASE
     Dosage: 375 NR
     Route: 048
     Dates: start: 2012
  5. PARACETAMOL [Concomitant]
  6. CALOGEN (LIQUID FOOD SUPPLEMENT) [Concomitant]
     Indication: MEDICAL DIET
     Dosage: 90 ML
     Route: 048
  7. ENSURE PLUS [Concomitant]
     Indication: MEDICAL DIET
     Dosage: 3 CARTONS DAILY
     Route: 048
  8. CITALOPRAM [Concomitant]
     Indication: DEPRESSION
     Dosage: 20 MG
     Route: 048
  9. TRAMADOL [Concomitant]
     Indication: PAIN
     Dosage: 200 MG
     Route: 048
     Dates: start: 201308
  10. OMEPRAZOLE [Concomitant]
     Dosage: 20 MG
     Route: 048

REACTIONS (2)
  - Malabsorption [Unknown]
  - Joint stiffness [Not Recovered/Not Resolved]
